FAERS Safety Report 23058737 (Version 1)
Quarter: 2023Q4

REPORT INFORMATION
  Report Type: Spontaneous
  Country: US (occurrence: None)
  Receive Date: 20231011
  Receipt Date: 20231011
  Transmission Date: 20240110
  Serious: Yes (Other)
  Sender: FDA-Public Use
  Company Number: None

PATIENT
  Age: 54 Year
  Sex: Male
  Weight: 104.33 kg

DRUGS (1)
  1. RYSTIGGO [Suspect]
     Active Substance: ROZANOLIXIZUMAB-NOLI
     Dosage: FREQUENCY : WEEKLY;?
     Route: 058
     Dates: start: 20230907

REACTIONS (5)
  - Headache [None]
  - Abdominal pain upper [None]
  - Diarrhoea [None]
  - Flank pain [None]
  - Abnormal sensation in eye [None]

NARRATIVE: CASE EVENT DATE: 20230907
